FAERS Safety Report 25348520 (Version 3)
Quarter: 2025Q3

REPORT INFORMATION
  Report Type: Spontaneous
  Country: JP (occurrence: JP)
  Receive Date: 20250522
  Receipt Date: 20250809
  Transmission Date: 20251021
  Serious: Yes (Life-Threatening, Hospitalization)
  Sender: ALEXION PHARMACEUTICALS
  Company Number: JP-ASTRAZENECA-250048820_013120_P_1

PATIENT
  Age: 80 Year
  Sex: Male
  Weight: 48 kg

DRUGS (9)
  1. DURVALUMAB [Suspect]
     Active Substance: DURVALUMAB
     Indication: Non-small cell lung cancer
     Dosage: 10 MILLIGRAM/KILOGRAM, Q2W
     Dates: start: 20250416
  2. PACLITAXEL [Concomitant]
     Active Substance: PACLITAXEL
     Route: 065
  3. CARBOPLATIN [Concomitant]
     Active Substance: CARBOPLATIN
     Route: 065
  4. Glucosam [Concomitant]
     Indication: Hypokalaemia
  5. URSODIOL [Concomitant]
     Active Substance: URSODIOL
  6. PREDNISOLONE [Concomitant]
     Active Substance: PREDNISOLONE
  7. ITRACONAZOLE [Concomitant]
     Active Substance: ITRACONAZOLE
  8. AZOSEMIDE [Concomitant]
     Active Substance: AZOSEMIDE
  9. TRELEGY ELLIPTA [Concomitant]
     Active Substance: FLUTICASONE FUROATE\UMECLIDINIUM BROMIDE\VILANTEROL TRIFENATATE

REACTIONS (1)
  - Liver disorder [Recovered/Resolved]

NARRATIVE: CASE EVENT DATE: 20250514
